FAERS Safety Report 5098270-2 (Version None)
Quarter: 2006Q3

REPORT INFORMATION
  Report Type: 
  Country: None (occurrence: None)
  Receive Date: 20060906
  Receipt Date: 20060810
  Transmission Date: 20061208
  Serious: Yes (Hospitalization)
  Sender: FDA-Public Use
  Company Number: US-AMGEN-STX189528

PATIENT
  Sex: Female

DRUGS (8)
  1. ENBREL [Suspect]
     Indication: RHEUMATOID ARTHRITIS
     Route: 058
     Dates: start: 20050101, end: 20060809
  2. METHOTREXATE [Concomitant]
  3. MOTRIN [Concomitant]
  4. CALCIUM GLUCONATE [Concomitant]
  5. LYRICA [Concomitant]
  6. FOLIC ACID [Concomitant]
  7. ACTONEL [Concomitant]
  8. ESTROGENS [Concomitant]

REACTIONS (1)
  - ISCHAEMIC STROKE [None]
